FAERS Safety Report 7237924-6 (Version None)
Quarter: 2011Q1

REPORT INFORMATION
  Report Type: 
  Country: None (occurrence: None)
  Receive Date: 20110119
  Receipt Date: 20110119
  Transmission Date: 20110831
  Serious: No
  Sender: FDA-Public Use
  Company Number: None

PATIENT
  Age: 68 Year
  Sex: Male
  Weight: 76.6 kg

DRUGS (4)
  1. LISINOPRIL [Suspect]
     Indication: HYPERTENSION
     Dosage: 5 MG EVERY DAY PO ONCE IM
     Route: 048
     Dates: start: 20110105, end: 20110105
  2. LISINOPRIL [Suspect]
     Indication: IMMUNISATION
     Dosage: 5 MG EVERY DAY PO ONCE IM
     Route: 048
     Dates: start: 20110105, end: 20110105
  3. LISINOPRIL [Suspect]
     Indication: HYPERTENSION
     Dosage: 5 MG EVERY DAY PO ONCE IM
     Route: 048
     Dates: start: 20091207, end: 20110106
  4. LISINOPRIL [Suspect]
     Indication: IMMUNISATION
     Dosage: 5 MG EVERY DAY PO ONCE IM
     Route: 048
     Dates: start: 20091207, end: 20110106

REACTIONS (3)
  - ANGIOEDEMA [None]
  - NO REACTION ON PREVIOUS EXPOSURE TO DRUG [None]
  - SWOLLEN TONGUE [None]
